FAERS Safety Report 13738900 (Version 1)
Quarter: 2017Q3

REPORT INFORMATION
  Report Type: Spontaneous
  Country: US (occurrence: US)
  Receive Date: 20170710
  Receipt Date: 20170710
  Transmission Date: 20171127
  Serious: Yes (Disabling, Other)
  Sender: FDA-Public Use
  Company Number: US-SAOL THERAPEUTICS-2017SAO00670

PATIENT
  Sex: Female

DRUGS (2)
  1. BACLOFEN. [Suspect]
     Active Substance: BACLOFEN
     Indication: MUSCLE SPASTICITY
     Route: 037
  2. BACLOFEN. [Suspect]
     Active Substance: BACLOFEN
     Indication: MOVEMENT DISORDER

REACTIONS (7)
  - Post lumbar puncture syndrome [Unknown]
  - Weight decreased [Unknown]
  - Hypoaesthesia [Unknown]
  - Headache [Unknown]
  - Visual impairment [Unknown]
  - Vomiting [Unknown]
  - Swelling [Unknown]

NARRATIVE: CASE EVENT DATE: 2015
